FAERS Safety Report 9099590 (Version 2)
Quarter: 2013Q1

REPORT INFORMATION
  Report Type: Spontaneous
  Country: US (occurrence: US)
  Receive Date: 20130214
  Receipt Date: 20130226
  Transmission Date: 20140127
  Serious: No
  Sender: FDA-Public Use
  Company Number: US-PFIZER INC-2013057440

PATIENT
  Age: 47 Year
  Sex: Male
  Weight: 83.9 kg

DRUGS (2)
  1. VIAGRA [Suspect]
     Indication: ERECTILE DYSFUNCTION
     Dosage: 25 MG, AS NEEDED
     Route: 048
     Dates: start: 20130204
  2. VIAGRA [Suspect]
     Dosage: 25 MG, AS NEEDED
     Route: 048
     Dates: start: 20130206, end: 20130208

REACTIONS (1)
  - Drug effect decreased [Unknown]
